FAERS Safety Report 8230695-6 (Version None)
Quarter: 2012Q1

REPORT INFORMATION
  Report Type: 
  Country: None (occurrence: None)
  Receive Date: 20120323
  Receipt Date: 20120314
  Transmission Date: 20120608
  Serious: Yes (Other)
  Sender: FDA-Public Use
  Company Number: GB-JNJFOC-20120308282

PATIENT
  Age: 63 Year
  Sex: Male
  Weight: 72.6 kg

DRUGS (13)
  1. LACTULOSE [Concomitant]
     Indication: CONSTIPATION
     Route: 065
     Dates: start: 20111230
  2. METOCLOPRAMIDE [Concomitant]
     Indication: PROPHYLAXIS
     Route: 065
     Dates: start: 20111230
  3. MOVIPREP [Concomitant]
     Indication: CONSTIPATION
     Route: 065
     Dates: start: 20111230
  4. MS CONTIN [Concomitant]
     Indication: PAIN
     Route: 065
     Dates: start: 20111230
  5. SIMVASTATIN [Concomitant]
     Indication: BLOOD CHOLESTEROL
     Route: 065
     Dates: end: 20111230
  6. CLOPIDOGREL [Concomitant]
     Indication: ANTICOAGULANT THERAPY
     Route: 065
     Dates: end: 20111230
  7. OMEPRAZOLE [Concomitant]
     Indication: PROPHYLAXIS
     Route: 065
     Dates: start: 20111230
  8. ORAMORPH SR [Concomitant]
     Indication: PAIN
     Route: 065
     Dates: start: 20111230
  9. PREDNISOLONE [Concomitant]
     Indication: CHEMOTHERAPY
     Route: 065
  10. CLONAZEPAM [Concomitant]
     Indication: MUSCLE SPASMS
     Route: 065
     Dates: start: 20111230
  11. ABIRATERONE ACETATE [Suspect]
     Indication: CHEMOTHERAPY
     Route: 048
     Dates: start: 20111230, end: 20120201
  12. DEXAMETHASONE [Concomitant]
     Indication: CHEMOTHERAPY
     Route: 065
     Dates: end: 20120123
  13. ACETAMINOPHEN [Concomitant]
     Indication: PAIN
     Route: 065
     Dates: start: 20111230

REACTIONS (1)
  - CONFUSIONAL STATE [None]
